FAERS Safety Report 8620415-5 (Version None)
Quarter: 2012Q3

REPORT INFORMATION
  Report Type: 
  Country: None (occurrence: None)
  Receive Date: 20120824
  Receipt Date: 20120816
  Transmission Date: 20120928
  Serious: Yes (Hospitalization)
  Sender: FDA-Public Use
  Company Number: FR-GLAXOSMITHKLINE-B0823133A

PATIENT
  Sex: Male

DRUGS (4)
  1. PLITICAN [Suspect]
     Indication: PREMEDICATION
     Dosage: 100MG SINGLE DOSE
     Route: 042
     Dates: start: 20120807, end: 20120807
  2. ZOFRAN [Suspect]
     Indication: PREMEDICATION
     Dosage: 8MG SINGLE DOSE
     Route: 042
     Dates: start: 20120807, end: 20120807
  3. OXALIPLATIN [Suspect]
     Indication: COLORECTAL CANCER
     Dosage: 160MG CYCLIC
     Route: 042
     Dates: start: 20120807, end: 20120807
  4. METHYLPREDNISOLONE [Suspect]
     Indication: PREMEDICATION
     Dosage: 40MG SINGLE DOSE
     Route: 042
     Dates: start: 20120807, end: 20120807

REACTIONS (3)
  - ERYTHEMA [None]
  - PRURITUS [None]
  - BURNING SENSATION [None]
